FAERS Safety Report 20398443 (Version 2)
Quarter: 2022Q1

REPORT INFORMATION
  Report Type: Spontaneous
  Country: US (occurrence: US)
  Receive Date: 20220131
  Receipt Date: 20220201
  Transmission Date: 20220424
  Serious: No
  Sender: FDA-Public Use
  Company Number: US-ABBVIE-21K-163-3836255-00

PATIENT
  Age: 47 Year
  Sex: Male

DRUGS (10)
  1. HUMIRA [Suspect]
     Active Substance: ADALIMUMAB
     Indication: Spondyloarthropathy
     Route: 058
     Dates: start: 202010
  2. QUINAPRIL [Concomitant]
     Active Substance: QUINAPRIL
     Indication: Hypertension
  3. ATENOLOL [Concomitant]
     Active Substance: ATENOLOL
     Indication: Hypertension
  4. VERAPAMIL [Concomitant]
     Active Substance: VERAPAMIL HYDROCHLORIDE
     Indication: Hypertension
  5. CETIRIZINE HYDROCHLORIDE [Concomitant]
     Active Substance: CETIRIZINE HYDROCHLORIDE
     Indication: Hypersensitivity
  6. MONTELUKAST [Concomitant]
     Active Substance: MONTELUKAST SODIUM
     Indication: Asthma
  7. MONTELUKAST [Concomitant]
     Active Substance: MONTELUKAST SODIUM
     Indication: Hypersensitivity
  8. GEMFIBROZIL [Concomitant]
     Active Substance: GEMFIBROZIL
     Indication: Blood triglycerides increased
  9. PANTOPRAZOLE [Concomitant]
     Active Substance: PANTOPRAZOLE
     Indication: Gastrointestinal disorder
  10. COVID-19 VACCINE [Concomitant]
     Indication: COVID-19 immunisation
     Dosage: PFIZER-BIOTECH
     Route: 030

REACTIONS (3)
  - Incorrect dose administered [Recovered/Resolved]
  - Off label use [Unknown]
  - Device issue [Recovered/Resolved]

NARRATIVE: CASE EVENT DATE: 20201001
